FAERS Safety Report 7261705-0 (Version None)
Quarter: 2011Q1

REPORT INFORMATION
  Report Type: 
  Country: None (occurrence: None)
  Receive Date: 20110130
  Receipt Date: 20101024
  Transmission Date: 20110831
  Serious: No
  Sender: FDA-Public Use
  Company Number: US-ABBOTT-10P-163-0680921-00

PATIENT
  Age: 61 Year
  Sex: Female

DRUGS (16)
  1. METHOTREXATE [Concomitant]
     Indication: RHEUMATOID ARTHRITIS
  2. FOLIC ACID [Concomitant]
     Indication: PRODUCT USED FOR UNKNOWN INDICATION
  3. FORTEO [Concomitant]
     Indication: MUSCLE DISORDER
  4. FORTEO [Concomitant]
     Indication: BONE DISORDER
  5. MELOXICAM [Concomitant]
     Indication: RHEUMATOID ARTHRITIS
  6. DARVOCET-N 100 [Concomitant]
     Indication: PAIN
  7. VIT C [Concomitant]
     Indication: PRODUCT USED FOR UNKNOWN INDICATION
  8. MULTI-VITAMIN [Concomitant]
     Indication: PRODUCT USED FOR UNKNOWN INDICATION
  9. IRON [Concomitant]
     Indication: PRODUCT USED FOR UNKNOWN INDICATION
  10. GABAPENTIN [Concomitant]
     Indication: PAIN
  11. FUROSEMIDE [Concomitant]
     Indication: FLUID RETENTION
  12. PREDNISONE [Concomitant]
     Indication: RHEUMATOID ARTHRITIS
  13. TALOPRAM [Concomitant]
     Indication: PRODUCT USED FOR UNKNOWN INDICATION
  14. HUMIRA [Suspect]
     Indication: RHEUMATOID ARTHRITIS
     Dates: start: 20101012
  15. CALCIUM WITH VITAMIN D [Concomitant]
     Indication: PRODUCT USED FOR UNKNOWN INDICATION
  16. PREVACID [Concomitant]
     Indication: DYSPEPSIA

REACTIONS (2)
  - SINUS HEADACHE [None]
  - RASH [None]
